FAERS Safety Report 21173822 (Version 1)
Quarter: 2022Q3

REPORT INFORMATION
  Report Type: Spontaneous
  Country: US (occurrence: US)
  Receive Date: 20220804
  Receipt Date: 20220804
  Transmission Date: 20221027
  Serious: No
  Sender: FDA-Public Use
  Company Number: US-PERRIGO-22US006440

PATIENT
  Sex: Female

DRUGS (2)
  1. LORATADINE [Suspect]
     Active Substance: LORATADINE
     Indication: Eye pruritus
     Dosage: 10 MG, TWICE 12 HRS APART
     Route: 048
     Dates: start: 20220428, end: 20220428
  2. LORATADINE [Suspect]
     Active Substance: LORATADINE
     Indication: Pruritus
     Dosage: 10 MG, SINGLE
     Route: 048
     Dates: start: 20220429

REACTIONS (4)
  - Therapeutic product effect incomplete [Unknown]
  - Off label use [Recovered/Resolved]
  - Expired product administered [Recovered/Resolved]
  - Extra dose administered [Recovered/Resolved]

NARRATIVE: CASE EVENT DATE: 20220428
